FAERS Safety Report 21865973 (Version 4)
Quarter: 2024Q2

REPORT INFORMATION
  Report Type: Spontaneous
  Country: US (occurrence: US)
  Receive Date: 20230116
  Receipt Date: 20240419
  Transmission Date: 20240716
  Serious: Yes (Other)
  Sender: FDA-Public Use
  Company Number: US-SA-SAC20230112000948

PATIENT
  Sex: Male

DRUGS (1)
  1. DUPIXENT [Suspect]
     Active Substance: DUPILUMAB
     Indication: Dermatitis atopic
     Dosage: 300 MG, QOW
     Route: 058
     Dates: start: 20191115

REACTIONS (5)
  - Throat cancer [Unknown]
  - Oesophageal ulcer [Unknown]
  - Lung carcinoma cell type unspecified stage I [Unknown]
  - Heart valve incompetence [Unknown]
  - Dermatitis atopic [Unknown]
